FAERS Safety Report 21692698 (Version 2)
Quarter: 2023Q1

REPORT INFORMATION
  Report Type: Spontaneous
  Country: GB (occurrence: GB)
  Receive Date: 20221207
  Receipt Date: 20230315
  Transmission Date: 20230418
  Serious: Yes (Other)
  Sender: FDA-Public Use
  Company Number: None

PATIENT
  Sex: Female
  Weight: 62 kg

DRUGS (9)
  1. TOLVAPTAN [Suspect]
     Active Substance: TOLVAPTAN
     Indication: Congenital cystic kidney disease
     Dosage: 45 MILLIGRAM, (TABLET)
     Route: 048
     Dates: start: 20190725
  2. TOLVAPTAN [Suspect]
     Active Substance: TOLVAPTAN
     Dosage: 15 MILLIGRAM, (TABLET)
     Route: 048
     Dates: start: 20190725
  3. TOLVAPTAN [Suspect]
     Active Substance: TOLVAPTAN
     Dosage: 45 MILLIGRAM, QD (AM) (1 DAY) (TABLET)
     Route: 048
     Dates: start: 20200217, end: 20200512
  4. TOLVAPTAN [Suspect]
     Active Substance: TOLVAPTAN
     Dosage: 15 MILLIGRAM, QD (PM) (1 DAY) (TABLET)
     Route: 048
     Dates: start: 20200217, end: 20200512
  5. TOLVAPTAN [Suspect]
     Active Substance: TOLVAPTAN
     Dosage: 60 MILLIGRAM, QD (AM) (1 DAY) TABLET
     Route: 048
     Dates: start: 20200512, end: 20201022
  6. TOLVAPTAN [Suspect]
     Active Substance: TOLVAPTAN
     Dosage: 30 MILLIGRAM, QD (PM) (1 DAY) (TABLET)
     Route: 048
     Dates: start: 20200512, end: 20201022
  7. TOLVAPTAN [Suspect]
     Active Substance: TOLVAPTAN
     Dosage: 60 MILLIGRAM, (TABLET)
     Route: 048
  8. TOLVAPTAN [Suspect]
     Active Substance: TOLVAPTAN
     Dosage: 30 MILLIGRAM, (TABLET)
     Route: 048
  9. ENALAPRIL [Concomitant]
     Active Substance: ENALAPRIL
     Indication: Hypertension
     Dosage: 5 MILLIGRAM, QD (1 DAY)
     Route: 048
     Dates: start: 20180306

REACTIONS (2)
  - Alanine aminotransferase increased [Recovered/Resolved]
  - Gamma-glutamyltransferase increased [Recovered/Resolved]

NARRATIVE: CASE EVENT DATE: 20201117
